FAERS Safety Report 11189229 (Version 2)
Quarter: 2015Q3

REPORT INFORMATION
  Report Type: Spontaneous
  Country: GT (occurrence: GT)
  Receive Date: 20150615
  Receipt Date: 20150720
  Transmission Date: 20151125
  Serious: Yes (Other)
  Sender: FDA-Public Use
  Company Number: GT-JNJFOC-20150607597

PATIENT
  Sex: Female

DRUGS (2)
  1. XARELTO [Suspect]
     Active Substance: RIVAROXABAN
     Indication: PULMONARY EMBOLISM
     Route: 048
  2. XARELTO [Suspect]
     Active Substance: RIVAROXABAN
     Indication: EMBOLISM VENOUS
     Route: 048

REACTIONS (14)
  - Sjogren^s syndrome [Unknown]
  - Adverse event [Unknown]
  - Palatal oedema [Unknown]
  - Dyspnoea [Unknown]
  - Asthenia [Recovered/Resolved]
  - Alopecia [Recovered/Resolved]
  - Mental impairment [Recovered/Resolved]
  - Arthritis [Unknown]
  - Systemic lupus erythematosus [Unknown]
  - Conjunctivitis allergic [Recovered/Resolved]
  - Hypertension [Unknown]
  - Pruritus [Unknown]
  - Fatigue [Recovered/Resolved]
  - Pallor [Recovered/Resolved]
